FAERS Safety Report 22146924 (Version 2)
Quarter: 2023Q2

REPORT INFORMATION
  Report Type: Report from Study
  Country: CA (occurrence: CA)
  Receive Date: 20230328
  Receipt Date: 20230418
  Transmission Date: 20230721
  Serious: Yes (Hospitalization, Other)
  Sender: FDA-Public Use
  Company Number: CA-HLS-202300438

PATIENT
  Age: 79 Year
  Sex: Male
  Weight: 81 kg

DRUGS (2)
  1. CLOZARIL [Suspect]
     Active Substance: CLOZAPINE
     Indication: Schizophrenia
     Route: 048
     Dates: start: 19950222, end: 202301
  2. CLOZARIL [Suspect]
     Active Substance: CLOZAPINE
     Indication: Schizophrenia
     Dosage: 100MG
     Route: 048
     Dates: start: 20130226, end: 20221213

REACTIONS (3)
  - Paranoia [Recovered/Resolved]
  - Treatment noncompliance [Unknown]
  - Pneumonia [Unknown]

NARRATIVE: CASE EVENT DATE: 20221205
